FAERS Safety Report 9536190 (Version 1)
Quarter: 2013Q3

REPORT INFORMATION
  Report Type: Spontaneous
  Country: US (occurrence: None)
  Receive Date: 20130917
  Receipt Date: 20130917
  Transmission Date: 20140515
  Serious: Yes (Other)
  Sender: FDA-Public Use
  Company Number: None

PATIENT
  Age: 72 Year
  Sex: Female
  Weight: 65.77 kg

DRUGS (8)
  1. LEVOFLOXACIN [Suspect]
     Indication: UNEVALUABLE EVENT
     Dosage: 500 MG 1 DAILY ONCE MOUTH
     Route: 048
     Dates: start: 20130801, end: 20130806
  2. GLIPIZIDE [Concomitant]
  3. METROPROLOL HCT [Concomitant]
  4. OXYBUTYNIN ER [Concomitant]
  5. OMEPRAZONE [Concomitant]
  6. SIMVASTATIN [Concomitant]
  7. LEVOTHYROXINE [Concomitant]
  8. LOSARTAN [Concomitant]

REACTIONS (1)
  - Myalgia [None]
